FAERS Safety Report 7193946 (Version 2)
Quarter: 2012Q4

REPORT INFORMATION
  Report Type: 
  Country: US (occurrence: US)
  Receive Date: 20091130
  Receipt Date: 20121024
  Transmission Date: 20130627
  Serious: Yes (Death, Hospitalization, Other)
  Sender: FDA-Public Use
  Company Number: US-ELI_LILLY_AND_COMPANY-US200911005730

PATIENT
  Age: 32 Year
  Sex: Male
  Weight: 167.8 kg

DRUGS (2)
  1. EFFIENT [Suspect]
     Indication: ACUTE MYOCARDIAL INFARCTION
     Dosage: 60 mg, single
     Dates: start: 200911
  2. REOPRO [Concomitant]
     Indication: THROMBOSIS IN DEVICE
     Dosage: UNK, single

REACTIONS (2)
  - Death [Fatal]
  - Thrombosis in device [Unknown]
